FAERS Safety Report 5441348-1 (Version None)
Quarter: 2007Q3

REPORT INFORMATION
  Report Type: 
  Country: None (occurrence: None)
  Receive Date: 20070903
  Receipt Date: 20070827
  Transmission Date: 20080115
  Serious: Yes (Hospitalization, Other)
  Sender: FDA-Public Use
  Company Number: PHNU2004DE03665

PATIENT
  Age: 62 Year
  Sex: Female
  Weight: 70 kg

DRUGS (2)
  1. ZOMETA [Suspect]
     Indication: METASTASES TO BONE
     Dosage: 4 MG, QMO
     Dates: start: 20020612, end: 20040824
  2. FEMARA [Concomitant]
     Indication: BREAST CANCER FEMALE

REACTIONS (14)
  - BIOPSY BONE ABNORMAL [None]
  - BONE DEBRIDEMENT [None]
  - BONE FORMATION INCREASED [None]
  - GENERAL ANAESTHESIA [None]
  - GINGIVAL HYPERPLASIA [None]
  - GINGIVAL OPERATION [None]
  - GINGIVITIS [None]
  - IMPAIRED HEALING [None]
  - JAW OPERATION [None]
  - OSTEOMYELITIS [None]
  - OSTEONECROSIS [None]
  - SEQUESTRECTOMY [None]
  - SWELLING [None]
  - TOOTH EXTRACTION [None]
